FAERS Safety Report 22828034 (Version 5)
Quarter: 2024Q4

REPORT INFORMATION
  Report Type: Spontaneous
  Country: US (occurrence: US)
  Receive Date: 20230816
  Receipt Date: 20241219
  Transmission Date: 20250115
  Serious: No
  Sender: PFIZER
  Company Number: US-PFIZER INC-PV202300139788

PATIENT
  Age: 73 Year
  Sex: Female
  Weight: 61.24 kg

DRUGS (3)
  1. IBRANCE [Suspect]
     Active Substance: PALBOCICLIB
     Indication: Breast cancer female
     Dosage: 125 MG
  2. IBRANCE [Suspect]
     Active Substance: PALBOCICLIB
     Dosage: 125 MG, DAILY
     Dates: start: 20220823
  3. ANASTROZOLE [Concomitant]
     Active Substance: ANASTROZOLE
     Dosage: 1 MG, 1X/DAY
     Dates: start: 202208

REACTIONS (3)
  - Mental disorder [Unknown]
  - Cough [Unknown]
  - Illness [Unknown]
